FAERS Safety Report 9175786 (Version 1)
Quarter: 2013Q1

REPORT INFORMATION
  Report Type: Spontaneous
  Country: CA (occurrence: CA)
  Receive Date: 20130320
  Receipt Date: 20130320
  Transmission Date: 20140127
  Serious: Yes (Hospitalization)
  Sender: FDA-Public Use
  Company Number: CA-009507513-1303CAN009660

PATIENT
  Age: 68 Year
  Sex: Female

DRUGS (1)
  1. INTRON A [Suspect]
     Indication: MYCOSIS FUNGOIDES
     Dosage: 6 MILLION IU, TIW

REACTIONS (1)
  - Hospitalisation [Unknown]
